FAERS Safety Report 5947242-1 (Version None)
Quarter: 2008Q4

REPORT INFORMATION
  Report Type: 
  Country: None (occurrence: None)
  Receive Date: 20081110
  Receipt Date: 20081103
  Transmission Date: 20090506
  Serious: No
  Sender: FDA-Public Use
  Company Number: US-B.I. PHARMACEUTICALS,INC./RIDGEFIELD-2008-BP-16672BP

PATIENT
  Sex: Male

DRUGS (2)
  1. ZANTAC 150 [Suspect]
     Indication: GASTROOESOPHAGEAL REFLUX DISEASE
     Dosage: 150MG
     Route: 048
     Dates: start: 20081102, end: 20081102
  2. ZANTAC 150 [Suspect]
     Indication: DYSPEPSIA

REACTIONS (3)
  - DIZZINESS [None]
  - FATIGUE [None]
  - HYPERHIDROSIS [None]
